FAERS Safety Report 7337774-6 (Version None)
Quarter: 2011Q1

REPORT INFORMATION
  Report Type: 
  Country: None (occurrence: None)
  Receive Date: 20110308
  Receipt Date: 20110209
  Transmission Date: 20110831
  Serious: No
  Sender: FDA-Public Use
  Company Number: US-B.I. PHARMACEUTICALS,INC./RIDGEFIELD-2010-BP-13786BP

PATIENT
  Age: 90 Year
  Sex: Female
  Weight: 63.5 kg

DRUGS (6)
  1. LASIX [Concomitant]
     Dosage: 20 MG
  2. COUMADIN [Concomitant]
     Indication: ATRIAL FIBRILLATION
  3. PRADAXA [Suspect]
     Indication: ATRIAL FIBRILLATION
     Dosage: 300 MG
     Route: 048
     Dates: start: 20101117, end: 20101201
  4. AVAPRO [Concomitant]
     Dosage: 150 MG
  5. NORVASC [Concomitant]
     Dosage: 10 MG
  6. VYTORIN [Concomitant]

REACTIONS (5)
  - LIP SWELLING [None]
  - MOUTH HAEMORRHAGE [None]
  - HAEMORRHAGE [None]
  - SWELLING FACE [None]
  - BLOOD BLISTER [None]
